FAERS Safety Report 20985056 (Version 1)
Quarter: 2022Q2

REPORT INFORMATION
  Report Type: Report from Study
  Country: FR (occurrence: FR)
  Receive Date: 20220621
  Receipt Date: 20220621
  Transmission Date: 20220720
  Serious: Yes (Other)
  Sender: FDA-Public Use
  Company Number: FR-SUN PHARMACEUTICAL INDUSTRIES LTD-2022R1-340815

PATIENT
  Age: 39 Year

DRUGS (2)
  1. CISPLATIN [Suspect]
     Active Substance: CISPLATIN
     Indication: Metastases to ovary
     Dosage: 75 MG/M2, 3 CYCLES
     Route: 065
  2. DOCETAXEL [Suspect]
     Active Substance: DOCETAXEL
     Indication: Metastases to ovary
     Dosage: 75 MG/M2, 3 CYCLES
     Route: 065

REACTIONS (1)
  - General physical health deterioration [Unknown]
